FAERS Safety Report 14448930 (Version 1)
Quarter: 2018Q1

REPORT INFORMATION
  Report Type: Spontaneous
  Country: US (occurrence: US)
  Receive Date: 20180126
  Receipt Date: 20180126
  Transmission Date: 20180509
  Serious: Yes (Other)
  Sender: FDA-Public Use
  Company Number: US-OTSUKA-15225022

PATIENT
  Sex: Female

DRUGS (2)
  1. CITALOPRAM [Concomitant]
     Active Substance: CITALOPRAM HYDROBROMIDE
     Indication: PRODUCT USED FOR UNKNOWN INDICATION
     Dosage: 20 MG, QD
     Route: 065
     Dates: start: 201003
  2. ABILIFY [Suspect]
     Active Substance: ARIPIPRAZOLE
     Indication: PRODUCT USED FOR UNKNOWN INDICATION
     Dosage: INTIALLY 5MG DAILY FROM 26JUN2010 FOR 2 WEEKS.DOSE INCREASED TO 10MG
     Route: 065
     Dates: start: 20100626, end: 20100719

REACTIONS (6)
  - Tachyphrenia [Unknown]
  - Muscle tightness [Unknown]
  - Mania [Unknown]
  - Drug ineffective [Unknown]
  - Somnolence [Unknown]
  - Formication [Unknown]
